FAERS Safety Report 23853180 (Version 1)
Quarter: 2024Q2

REPORT INFORMATION
  Report Type: Spontaneous
  Country: AE (occurrence: AE)
  Receive Date: 20240514
  Receipt Date: 20240514
  Transmission Date: 20240715
  Serious: Yes (Hospitalization, Other)
  Sender: FDA-Public Use
  Company Number: AE-002147023-NVSC2024AE097575

PATIENT
  Age: 48 Year
  Sex: Male

DRUGS (7)
  1. GLIVEC [Suspect]
     Active Substance: IMATINIB MESYLATE
     Indication: Chronic myeloid leukaemia
     Dosage: UNK
     Route: 065
  2. TASIGNA [Suspect]
     Active Substance: NILOTINIB
     Indication: Chronic myeloid leukaemia
     Dosage: UNK (FOR 3 DAYS)
     Route: 065
     Dates: start: 20170803
  3. TASIGNA [Suspect]
     Active Substance: NILOTINIB
     Dosage: 300 MG, BID
     Route: 065
  4. TASIGNA [Suspect]
     Active Substance: NILOTINIB
     Dosage: 150 MG
     Route: 065
  5. SCEMBLIX [Suspect]
     Active Substance: ASCIMINIB HYDROCHLORIDE
     Indication: Chronic myeloid leukaemia
     Dosage: 80 MG, QD
     Route: 065
     Dates: start: 202306
  6. DASATINIB [Suspect]
     Active Substance: DASATINIB
     Indication: Chronic myeloid leukaemia
     Dosage: 100 MG, QD
     Route: 065
     Dates: start: 20131220
  7. ALBUTEROL [Concomitant]
     Active Substance: ALBUTEROL
     Indication: Asthma
     Dosage: UNK, PRN
     Route: 065

REACTIONS (9)
  - Leukocytosis [Unknown]
  - Thrombocytopenia [Unknown]
  - Malignant neoplasm progression [Unknown]
  - Chronic myeloid leukaemia [Unknown]
  - Vomiting [Unknown]
  - Headache [Unknown]
  - Diarrhoea [Unknown]
  - Rash [Unknown]
  - Musculoskeletal pain [Unknown]
